FAERS Safety Report 12437236 (Version 1)
Quarter: 2016Q2

REPORT INFORMATION
  Report Type: Spontaneous
  Country: US (occurrence: None)
  Receive Date: 20160603
  Receipt Date: 20160603
  Transmission Date: 20160815
  Serious: Yes (Other)
  Sender: FDA-Public Use
  Company Number: None

PATIENT
  Age: 49 Year
  Sex: Female
  Weight: 86.18 kg

DRUGS (4)
  1. ZYRTEC [Concomitant]
     Active Substance: CETIRIZINE HYDROCHLORIDE
  2. OXYCONTIN [Suspect]
     Active Substance: OXYCODONE HYDROCHLORIDE
     Indication: POST LAMINECTOMY SYNDROME
     Dosage: 60 TABLET(S) EVERY 12 HOURS TAKEN BY MOUTH
     Route: 048
  3. DIAZEPAM. [Concomitant]
     Active Substance: DIAZEPAM
  4. SOMA [Concomitant]
     Active Substance: CARISOPRODOL

REACTIONS (7)
  - Migraine [None]
  - Insomnia [None]
  - Impaired driving ability [None]
  - Abdominal pain upper [None]
  - Anxiety [None]
  - Mental disorder [None]
  - Eating disorder [None]

NARRATIVE: CASE EVENT DATE: 20160526
